FAERS Safety Report 7224214-0 (Version None)
Quarter: 2011Q1

REPORT INFORMATION
  Report Type: 
  Country: None (occurrence: None)
  Receive Date: 20110106
  Receipt Date: 20110106
  Transmission Date: 20110831
  Serious: Yes (Hospitalization)
  Sender: FDA-Public Use
  Company Number: None

PATIENT
  Sex: Female
  Weight: 103 kg

DRUGS (3)
  1. AMBIEN [Concomitant]
  2. CISPLATIN [Suspect]
     Dosage: 100 MG
  3. LISINOPRIL [Concomitant]

REACTIONS (3)
  - STAPHYLOCOCCAL INFECTION [None]
  - PERINEAL ABSCESS [None]
  - VULVAL ABSCESS [None]
